FAERS Safety Report 8620864-5 (Version None)
Quarter: 2012Q3

REPORT INFORMATION
  Report Type: 
  Country: None (occurrence: None)
  Receive Date: 20120824
  Receipt Date: 20120822
  Transmission Date: 20120928
  Serious: Yes (Hospitalization)
  Sender: FDA-Public Use
  Company Number: FR-ROCHE-1106771

PATIENT
  Age: 62 Year
  Sex: Male

DRUGS (4)
  1. DEPAKENE [Interacting]
     Route: 048
     Dates: start: 20110101
  2. NEXIUM [Interacting]
     Indication: ANTIINFLAMMATORY THERAPY
     Route: 048
     Dates: start: 20110923, end: 20110923
  3. DEPAKENE [Interacting]
     Indication: IDIOPATHIC GENERALISED EPILEPSY
     Route: 048
     Dates: start: 20090101
  4. NAPROXEN [Suspect]
     Indication: ARTHRALGIA
     Route: 048
     Dates: start: 20110923, end: 20110923

REACTIONS (2)
  - DRUG INTERACTION [None]
  - STATUS EPILEPTICUS [None]
